FAERS Safety Report 8326005-6 (Version None)
Quarter: 2012Q2

REPORT INFORMATION
  Report Type: 
  Country: None (occurrence: None)
  Receive Date: 20120501
  Receipt Date: 20120425
  Transmission Date: 20120825
  Serious: No
  Sender: FDA-Public Use
  Company Number: US-BIOGENIDEC-2012BI014656

PATIENT
  Sex: Female

DRUGS (1)
  1. TYSABRI [Suspect]
     Indication: MULTIPLE SCLEROSIS
     Route: 042
     Dates: start: 20120229

REACTIONS (8)
  - FATIGUE [None]
  - BREAST MASS [None]
  - ARTHRALGIA [None]
  - HEADACHE [None]
  - BIOPSY SKIN [None]
  - VITAMIN D DECREASED [None]
  - NAUSEA [None]
  - ALOPECIA [None]
